FAERS Safety Report 12574578 (Version 3)
Quarter: 2016Q3

REPORT INFORMATION
  Report Type: Report from Study
  Country: US (occurrence: US)
  Receive Date: 20160720
  Receipt Date: 20160815
  Transmission Date: 20161109
  Serious: Yes (Hospitalization, Other)
  Sender: FDA-Public Use
  Company Number: US-JNJFOC-20160617165

PATIENT
  Age: 93 Year
  Sex: Female

DRUGS (17)
  1. IMBRUVICA [Suspect]
     Active Substance: IBRUTINIB
     Indication: CHRONIC LYMPHOCYTIC LEUKAEMIA
     Route: 048
     Dates: start: 20160603, end: 2016
  2. METOPROLOL. [Concomitant]
     Active Substance: METOPROLOL
  3. FERROUS SULFATE. [Concomitant]
     Active Substance: FERROUS SULFATE
  4. PREMARIN [Concomitant]
     Active Substance: ESTROGENS, CONJUGATED
  5. NAPROSYN [Concomitant]
     Active Substance: NAPROXEN
  6. CALCIUM [Concomitant]
     Active Substance: CALCIUM
  7. COENZYME Q10 [Concomitant]
     Active Substance: UBIDECARENONE
  8. ASPIRIN. [Concomitant]
     Active Substance: ASPIRIN
  9. AMIODARONE [Concomitant]
     Active Substance: AMIODARONE
  10. SYNTHROID [Concomitant]
     Active Substance: LEVOTHYROXINE SODIUM
  11. CHONDROITIN W/GLUCOSAMINE [Concomitant]
  12. CENTRUM SILVER [Concomitant]
     Active Substance: MINERALS\VITAMINS
  13. IMBRUVICA [Suspect]
     Active Substance: IBRUTINIB
     Indication: CHRONIC LYMPHOCYTIC LEUKAEMIA
     Route: 048
     Dates: start: 20160526
  14. PREVACID [Concomitant]
     Active Substance: LANSOPRAZOLE
  15. TOPROL XL [Concomitant]
     Active Substance: METOPROLOL SUCCINATE
  16. PRESERVISION AREDS [Concomitant]
     Active Substance: MINERALS\VITAMINS
  17. GINKGO BILOBA [Concomitant]
     Active Substance: GINKGO

REACTIONS (10)
  - Abdominal discomfort [Recovered/Resolved]
  - Supraventricular tachycardia [Unknown]
  - Off label use [Not Recovered/Not Resolved]
  - Hospitalisation [Unknown]
  - Incorrect dose administered [Not Recovered/Not Resolved]
  - Pleural effusion [Unknown]
  - Pericardial effusion [Unknown]
  - Mass [Recovering/Resolving]
  - Fatigue [Not Recovered/Not Resolved]
  - Diarrhoea [Not Recovered/Not Resolved]

NARRATIVE: CASE EVENT DATE: 2016
